FAERS Safety Report 14264702 (Version 4)
Quarter: 2018Q4

REPORT INFORMATION
  Report Type: Spontaneous
  Country: US (occurrence: US)
  Receive Date: 20171208
  Receipt Date: 20181204
  Transmission Date: 20190204
  Serious: No
  Sender: FDA-Public Use
  Company Number: US-VIFOR (INTERNATIONAL) INC.-VIT-2017-09153

PATIENT
  Sex: Female

DRUGS (23)
  1. VELTASSA [Suspect]
     Active Substance: PATIROMER
     Route: 048
  2. PROLIA [Concomitant]
     Active Substance: DENOSUMAB
  3. DICYCLOMINE HYDROCHLORIDE. [Concomitant]
     Active Substance: DICYCLOMINE HYDROCHLORIDE
  4. SODIUM BICARBONATE. [Concomitant]
     Active Substance: SODIUM BICARBONATE
  5. CALCITRIOL. [Concomitant]
     Active Substance: CALCITRIOL
  6. OMEPRAZOLE. [Concomitant]
     Active Substance: OMEPRAZOLE
  7. MELATONIN [Concomitant]
     Active Substance: MELATONIN
  8. URSODIOL. [Concomitant]
     Active Substance: URSODIOL
  9. CELEXA [Concomitant]
     Active Substance: CITALOPRAM HYDROBROMIDE
  10. CITRACAL PETITES/ VITAMIN D [Concomitant]
  11. TRAZODONE HYDROCHLORIDE. [Concomitant]
     Active Substance: TRAZODONE HYDROCHLORIDE
  12. ASPIRIN. [Concomitant]
     Active Substance: ASPIRIN
  13. ARANESP [Concomitant]
     Active Substance: DARBEPOETIN ALFA
  14. XANAX [Concomitant]
     Active Substance: ALPRAZOLAM
  15. DOXYCYCLINE HYCLATE. [Concomitant]
     Active Substance: DOXYCYCLINE HYCLATE
  16. VELTASSA [Suspect]
     Active Substance: PATIROMER
     Indication: HYPERKALAEMIA
     Route: 048
     Dates: start: 20170224
  17. COLACE CLEAR [Concomitant]
     Active Substance: DOCUSATE SODIUM
  18. FOLIC ACID. [Concomitant]
     Active Substance: FOLIC ACID
  19. CARVEDILOL. [Concomitant]
     Active Substance: CARVEDILOL
  20. PLAQUENIL [Concomitant]
     Active Substance: HYDROXYCHLOROQUINE SULFATE
  21. FIBERCON [Concomitant]
     Active Substance: CALCIUM POLYCARBOPHIL
  22. SIMVASTATIN. [Concomitant]
     Active Substance: SIMVASTATIN
  23. ZYRTEC [Concomitant]
     Active Substance: CETIRIZINE HYDROCHLORIDE

REACTIONS (6)
  - Gastrointestinal disorder [Unknown]
  - Inappropriate schedule of product administration [Unknown]
  - Urinary tract infection [Unknown]
  - Influenza [Recovered/Resolved]
  - Nasopharyngitis [Unknown]
  - Renal disorder [Unknown]
